FAERS Safety Report 6816129-4 (Version None)
Quarter: 2010Q3

REPORT INFORMATION
  Report Type: 
  Country: None (occurrence: None)
  Receive Date: 20100702
  Receipt Date: 20100702
  Transmission Date: 20110219
  Serious: Yes (Other)
  Sender: FDA-Public Use
  Company Number: None

PATIENT
  Age: 48 Year
  Sex: Female
  Weight: 83.9154 kg

DRUGS (2)
  1. LEXAPRO [Suspect]
     Indication: DEPRESSION
     Dates: start: 20060815, end: 20100611
  2. LEXAPRO [Suspect]
     Indication: PREMENSTRUAL SYNDROME
     Dates: start: 20060815, end: 20100611

REACTIONS (3)
  - ECONOMIC PROBLEM [None]
  - IMPULSIVE BEHAVIOUR [None]
  - MIGRAINE [None]
